FAERS Safety Report 25033749 (Version 1)
Quarter: 2025Q1

REPORT INFORMATION
  Report Type: Report from Study
  Country: US (occurrence: US)
  Receive Date: 20250303
  Receipt Date: 20250303
  Transmission Date: 20250409
  Serious: Yes (Hospitalization, Other)
  Sender: BIOGEN
  Company Number: US-BIOGEN-2025BI01302228

PATIENT
  Age: 43 Year
  Sex: Female

DRUGS (1)
  1. TECFIDERA [Suspect]
     Active Substance: DIMETHYL FUMARATE
     Indication: Multiple sclerosis
     Route: 050
     Dates: start: 20130510

REACTIONS (4)
  - Influenza [Unknown]
  - Back pain [Unknown]
  - Road traffic accident [Recovered/Resolved]
  - Intervertebral disc injury [Unknown]

NARRATIVE: CASE EVENT DATE: 20250216
